FAERS Safety Report 15716517 (Version 2)
Quarter: 2019Q1

REPORT INFORMATION
  Report Type: Report from Study
  Country: JP (occurrence: JP)
  Receive Date: 20181213
  Receipt Date: 20190110
  Transmission Date: 20190417
  Serious: Yes (Hospitalization, Other)
  Sender: FDA-Public Use
  Company Number: JP-ALXN-A201815228AA

PATIENT
  Age: 33 Year
  Sex: Female

DRUGS (1)
  1. SOLIRIS [Suspect]
     Active Substance: ECULIZUMAB
     Indication: MYASTHENIA GRAVIS
     Dosage: 1200 MG, Q2W
     Route: 042
     Dates: start: 20180814

REACTIONS (3)
  - Staphylococcal sepsis [Recovered/Resolved]
  - Myasthenia gravis [Recovered/Resolved]
  - Lung abscess [Not Recovered/Not Resolved]

NARRATIVE: CASE EVENT DATE: 20181115
